FAERS Safety Report 4988845-0 (Version None)
Quarter: 2006Q2

REPORT INFORMATION
  Report Type: 
  Country: None (occurrence: None)
  Receive Date: 20060426
  Receipt Date: 20060410
  Transmission Date: 20061013
  Serious: Yes (Hospitalization)
  Sender: FDA-Public Use
  Company Number: JP_031202360

PATIENT
  Age: 58 Year
  Sex: Male
  Weight: 72 kg

DRUGS (3)
  1. HUMALOG [Suspect]
     Indication: DIABETES MELLITUS NON-INSULIN-DEPENDENT
     Dosage: 30 U, DAILY (1/D), SUBCUTANEOUSS
     Route: 058
     Dates: start: 20030201, end: 20030814
  2. HUMALOG PEN [Concomitant]
  3. FERROMIA (FERROUS CITRATE) [Concomitant]

REACTIONS (13)
  - ASCITES [None]
  - BLOOD IMMUNOGLOBULIN E INCREASED [None]
  - CORONARY ARTERY DISEASE [None]
  - DRUG HYPERSENSITIVITY [None]
  - EOSINOPHIL COUNT INCREASED [None]
  - GASTROENTERITIS EOSINOPHILIC [None]
  - NAUSEA [None]
  - OEDEMA PERIPHERAL [None]
  - PLEURAL EFFUSION [None]
  - RASH ERYTHEMATOUS [None]
  - RASH GENERALISED [None]
  - VOMITING [None]
  - WEIGHT DECREASED [None]
